FAERS Safety Report 5727944-2 (Version None)
Quarter: 2008Q2

REPORT INFORMATION
  Report Type: 
  Country: None (occurrence: None)
  Receive Date: 20080430
  Receipt Date: 20080224
  Transmission Date: 20081010
  Serious: No
  Sender: FDA-Public Use
  Company Number: 2008PV034356

PATIENT
  Age: 64 Year
  Sex: Female

DRUGS (13)
  1. SYMLIN [Suspect]
     Indication: TYPE 2 DIABETES MELLITUS
     Dosage: 60 MCG;BID;SC
     Route: 058
     Dates: start: 20080101
  2. GLUCOPHAGE ER [Concomitant]
  3. LANTUS [Concomitant]
  4. NOVOLOG [Concomitant]
  5. ASPIRIN [Concomitant]
  6. PAXIL [Concomitant]
  7. RANITIDINE HCL [Concomitant]
  8. LISINOPRIL [Concomitant]
  9. LIPITOR [Concomitant]
  10. AMITRIPTYLINE HCL [Concomitant]
  11. ATENOLOL [Concomitant]
  12. PRIMIDONE [Concomitant]
  13. HYDROXYZINE [Concomitant]

REACTIONS (3)
  - INJECTION SITE BRUISING [None]
  - RASH GENERALISED [None]
  - URTICARIA [None]
